FAERS Safety Report 10663697 (Version 1)
Quarter: 2014Q4

REPORT INFORMATION
  Report Type: Spontaneous
  Country: AU (occurrence: AU)
  Receive Date: 20141219
  Receipt Date: 20141219
  Transmission Date: 20150529
  Serious: Yes (Hospitalization)
  Sender: FDA-Public Use
  Company Number: AU-ROCHE-1509842

PATIENT
  Age: 59 Year
  Sex: Male

DRUGS (3)
  1. FRUSEMIDE [Concomitant]
     Active Substance: FUROSEMIDE
  2. LUCENTIS [Suspect]
     Active Substance: RANIBIZUMAB
     Indication: DIABETIC RETINAL OEDEMA
     Dosage: IN BOTH EYES
     Route: 050
     Dates: start: 20140813
  3. BACTRIM [Concomitant]
     Active Substance: SULFAMETHOXAZOLE\TRIMETHOPRIM
     Route: 065

REACTIONS (3)
  - Orthostatic hypotension [Recovered/Resolved with Sequelae]
  - Neuropathy peripheral [Recovered/Resolved with Sequelae]
  - Acute kidney injury [Recovered/Resolved with Sequelae]

NARRATIVE: CASE EVENT DATE: 20141116
